FAERS Safety Report 9633924 (Version 1)
Quarter: 2013Q4

REPORT INFORMATION
  Report Type: Spontaneous
  Country: US (occurrence: US)
  Receive Date: 20131021
  Receipt Date: 20131021
  Transmission Date: 20140711
  Serious: Yes (Other)
  Sender: FDA-Public Use
  Company Number: US-JNJFOC-20131006833

PATIENT
  Sex: 0

DRUGS (1)
  1. METHYLPHENIDATE HYDROCHLORIDE [Suspect]
     Indication: ATTENTION DEFICIT/HYPERACTIVITY DISORDER
     Route: 048

REACTIONS (10)
  - Myocardial infarction [Unknown]
  - Cerebrovascular accident [Unknown]
  - Hypertension [Unknown]
  - Angina pectoris [Unknown]
  - Aortic aneurysm [Unknown]
  - Arrhythmia [Unknown]
  - Syncope [Unknown]
  - Palpitations [Unknown]
  - Tachycardia [Unknown]
  - Off label use [Unknown]
